FAERS Safety Report 7978197-6 (Version None)
Quarter: 2011Q4

REPORT INFORMATION
  Report Type: 
  Country: None (occurrence: None)
  Receive Date: 20111129
  Receipt Date: 20110819
  Transmission Date: 20120403
  Serious: No
  Sender: FDA-Public Use
  Company Number: PHHY2011US62844

PATIENT

DRUGS (2)
  1. AFINITOR [Suspect]
     Dosage: ORAL
     Route: 048
  2. ASPIRIN [Concomitant]

REACTIONS (2)
  - CONSTIPATION [None]
  - MEDICATION RESIDUE [None]
